FAERS Safety Report 6102686-2 (Version None)
Quarter: 2009Q1

REPORT INFORMATION
  Report Type: 
  Country: None (occurrence: None)
  Receive Date: 20090304
  Receipt Date: 20090107
  Transmission Date: 20090719
  Serious: No
  Sender: FDA-Public Use
  Company Number: A0762522A

PATIENT
  Age: 78 Year
  Sex: Male

DRUGS (9)
  1. ROPINIROLE [Suspect]
     Indication: RESTLESS LEGS SYNDROME
     Dosage: 3MG PER DAY
     Route: 048
     Dates: start: 20080901, end: 20081201
  2. ROPINIROLE [Suspect]
     Dosage: 3MG PER DAY
     Dates: start: 20081201
  3. DIOVAN [Concomitant]
  4. QUININE SULFATE [Concomitant]
  5. CELEBREX [Concomitant]
  6. CRESTOR [Concomitant]
  7. PROPRANOLOL HYDROCHLORIDE [Concomitant]
  8. PLAVIX [Concomitant]
  9. ASPIRIN [Concomitant]

REACTIONS (3)
  - ABDOMINAL PAIN UPPER [None]
  - HOT FLUSH [None]
  - SOMNOLENCE [None]
